FAERS Safety Report 4797462-7 (Version None)
Quarter: 2005Q4

REPORT INFORMATION
  Report Type: 
  Country: None (occurrence: None)
  Receive Date: 20051006
  Receipt Date: 20051006
  Transmission Date: 20060501
  Serious: Yes (Life-Threatening, Hospitalization)
  Sender: FDA-Public Use
  Company Number: None

PATIENT
  Age: 56 Year
  Sex: Male
  Weight: 95 kg

DRUGS (14)
  1. PHENYTOIN [Suspect]
     Indication: CONVULSION
     Dosage: 300 MG PO Q 12 HOURS
     Route: 048
  2. DIAZEPAM [Concomitant]
  3. NAPROXEN [Concomitant]
  4. SILDENAFIL [Concomitant]
  5. DIVALPROEX SODIUM [Concomitant]
  6. METHOCARBAMOL [Concomitant]
  7. LORATADINE [Concomitant]
  8. VERAPAMIL [Concomitant]
  9. RANITIDINE [Concomitant]
  10. HYDROCHLOROTHIAZIDE [Concomitant]
  11. OLANZAPINE [Concomitant]
  12. PROZAC [Concomitant]
  13. LOVASTATIN [Concomitant]
  14. ASPIRIN [Concomitant]

REACTIONS (7)
  - ANTICONVULSANT DRUG LEVEL INCREASED [None]
  - FACIAL BONES FRACTURE [None]
  - FALL [None]
  - HEAD INJURY [None]
  - LOSS OF CONSCIOUSNESS [None]
  - SKIN LACERATION [None]
  - SUBDURAL HAEMATOMA [None]
